FAERS Safety Report 26183547 (Version 1)
Quarter: 2025Q4

REPORT INFORMATION
  Report Type: Spontaneous
  Country: US (occurrence: US)
  Receive Date: 20251221
  Receipt Date: 20251221
  Transmission Date: 20260118
  Serious: No
  Sender: ABBVIE
  Company Number: US-ABBVIE-6597440

PATIENT
  Age: 68 Year
  Sex: Male
  Weight: 66.224 kg

DRUGS (3)
  1. CREON [Suspect]
     Active Substance: PANCRELIPASE AMYLASE\PANCRELIPASE LIPASE\PANCRELIPASE PROTEASE
     Indication: Pancreatic carcinoma
     Route: 048
     Dates: start: 2023
  2. TRAMADOL [Concomitant]
     Active Substance: TRAMADOL
     Indication: Neuropathy peripheral
  3. GABAPENTIN [Concomitant]
     Active Substance: GABAPENTIN
     Indication: Neuropathy peripheral

REACTIONS (2)
  - Faeces discoloured [Unknown]
  - Steatorrhoea [Recovering/Resolving]

NARRATIVE: CASE EVENT DATE: 20240101
